FAERS Safety Report 22373134 (Version 1)
Quarter: 2023Q2

REPORT INFORMATION
  Report Type: Spontaneous
  Country: CA (occurrence: CA)
  Receive Date: 20230526
  Receipt Date: 20230526
  Transmission Date: 20230722
  Serious: Yes (Hospitalization)
  Sender: FDA-Public Use
  Company Number: CA-HLS-202301203

PATIENT
  Sex: Male

DRUGS (10)
  1. ATROPINE [Concomitant]
     Active Substance: ATROPINE
     Indication: Product used for unknown indication
     Route: 060
  2. CLOZAPINE [Suspect]
     Active Substance: CLOZAPINE
     Indication: Product used for unknown indication
     Dosage: AMOUNT: 400 MILLIGRAM?TABLETS DOSAGE FORM
     Route: 065
  3. OLANZAPINE [Suspect]
     Active Substance: OLANZAPINE
     Indication: Product used for unknown indication
     Dosage: AMOUNT: 15 MILLIGRAM
     Route: 065
  4. OLANZAPINE [Suspect]
     Active Substance: OLANZAPINE
     Indication: Product used for unknown indication
     Dosage: AMOUNT: 5 MILLIGRAM
     Route: 065
  5. OLANZAPINE [Suspect]
     Active Substance: OLANZAPINE
     Indication: Product used for unknown indication
     Dosage: AMOUNT: 5 MILLIGRAM?NOT SPECIFIED DOSAGE FORM
     Route: 065
  6. OLANZAPINE [Suspect]
     Active Substance: OLANZAPINE
     Indication: Product used for unknown indication
     Dosage: 1 EVERY 1 DAYS?AMOUNT: 10 MILLIGRAM
     Route: 065
  7. PALIPERIDONE [Suspect]
     Active Substance: PALIPERIDONE
     Indication: Product used for unknown indication
     Dosage: 1 EVERY 3 MONTHS?AMOUNT: 350 MILLIGRAM
     Route: 065
  8. SODIUM CHLORIDE [Suspect]
     Active Substance: SODIUM CHLORIDE
     Indication: Product used for unknown indication
     Dosage: AMOUNT: 150 ML?NOT SPECIFIED DOSAGE FORM?THERAPY DURATION: 20 MINUTES
     Route: 065
  9. SODIUM CHLORIDE [Suspect]
     Active Substance: SODIUM CHLORIDE
     Indication: Product used for unknown indication
     Dosage: 1 EVERY 1 HOURS?AMOUNT: 100 ML?THERAPY DURATION: 20 MINUTES
     Route: 041
  10. SODIUM CHLORIDE [Suspect]
     Active Substance: SODIUM CHLORIDE
     Indication: Product used for unknown indication
     Dosage: THERAPY DURATION: 20 MINUTES
     Route: 065

REACTIONS (8)
  - Blood sodium increased [Unknown]
  - Confusional state [Unknown]
  - Hyperhidrosis [Unknown]
  - Pain [Unknown]
  - Product administration error [Unknown]
  - Rhabdomyolysis [Unknown]
  - Tachycardia [Unknown]
  - Tremor [Unknown]
